FAERS Safety Report 11989500 (Version 2)
Quarter: 2016Q1

REPORT INFORMATION
  Report Type: Report from Study
  Country: US (occurrence: US)
  Receive Date: 20160202
  Receipt Date: 20160218
  Transmission Date: 20160526
  Serious: Yes (Death, Other)
  Sender: FDA-Public Use
  Company Number: PHEH2016US002497

PATIENT
  Age: 76 Year
  Sex: Male
  Weight: 75.9 kg

DRUGS (1)
  1. EXJADE [Suspect]
     Active Substance: DEFERASIROX
     Indication: IRON OVERLOAD
     Dosage: 5 DF (5 TABLETS DAILY)
     Route: 048
     Dates: start: 20140107, end: 20151113

REACTIONS (8)
  - Aspartate aminotransferase increased [Unknown]
  - Blood creatinine increased [Unknown]
  - Disease progression [Fatal]
  - Serum ferritin increased [Unknown]
  - Myelodysplastic syndrome [Fatal]
  - Haemoglobin decreased [Unknown]
  - Alanine aminotransferase increased [Unknown]
  - Platelet count decreased [Unknown]

NARRATIVE: CASE EVENT DATE: 201401
